FAERS Safety Report 20326886 (Version 2)
Quarter: 2022Q1

REPORT INFORMATION
  Report Type: Spontaneous
  Country: JP (occurrence: JP)
  Receive Date: 20220112
  Receipt Date: 20220225
  Transmission Date: 20220423
  Serious: Yes (Death, Other)
  Sender: FDA-Public Use
  Company Number: JP-ASTELLAS-2021JP024598

PATIENT
  Age: 72 Year
  Sex: Male

DRUGS (2)
  1. PADCEV [Suspect]
     Active Substance: ENFORTUMAB VEDOTIN-EJFV
     Indication: Bladder cancer
     Dosage: UNK UNK, UNKNOWN FREQ.
     Route: 041
     Dates: start: 20211207
  2. Lopemin [Concomitant]
     Indication: Diarrhoea
     Dosage: UNK UNK, TWICE DAILY
     Route: 065
     Dates: start: 20211216

REACTIONS (5)
  - Disseminated intravascular coagulation [Fatal]
  - Myelosuppression [Unknown]
  - Interstitial lung disease [Unknown]
  - Toxic epidermal necrolysis [Unknown]
  - Diarrhoea [Recovering/Resolving]

NARRATIVE: CASE EVENT DATE: 20211215
